FAERS Safety Report 5178996-2 (Version None)
Quarter: 2006Q4

REPORT INFORMATION
  Report Type: 
  Country: None (occurrence: None)
  Receive Date: 20061213
  Receipt Date: 20061213
  Transmission Date: 20070319
  Serious: Yes (Hospitalization)
  Sender: FDA-Public Use
  Company Number: None

PATIENT
  Sex: Female
  Weight: 45.269 kg

DRUGS (5)
  1. ARANESP [Suspect]
     Indication: ANAEMIA
     Dosage: 200 MCG WKLY SQ
     Route: 058
     Dates: start: 20061020
  2. VELCADE [Suspect]
     Indication: MULTIPLE MYELOMA
     Dosage: 1.3 MG/M^2 WKLY X4 IV
     Route: 042
     Dates: start: 20060421, end: 20060526
  3. ZOMETA [Suspect]
     Indication: MULTIPLE MYELOMA
     Dosage: 3MG Q4WKS IV
     Route: 042
     Dates: start: 20061020
  4. DEXAMETHASONE [Concomitant]
  5. MV1 [Concomitant]

REACTIONS (13)
  - ANAEMIA [None]
  - CHRONIC OBSTRUCTIVE PULMONARY DISEASE [None]
  - EMPHYSEMA [None]
  - HYPERCALCAEMIA [None]
  - HYPONATRAEMIA [None]
  - HYPOPROTEINAEMIA [None]
  - MALIGNANT NEOPLASM PROGRESSION [None]
  - MULTIPLE MYELOMA [None]
  - PNEUMONIA [None]
  - RED BLOOD CELL SEDIMENTATION RATE INCREASED [None]
  - RENAL FAILURE [None]
  - THROMBOCYTOPENIA [None]
  - WEIGHT DECREASED [None]
